FAERS Safety Report 6051441-0 (Version None)
Quarter: 2009Q1

REPORT INFORMATION
  Report Type: 
  Country: None (occurrence: None)
  Receive Date: 20090121
  Receipt Date: 20090121
  Transmission Date: 20090719
  Serious: Yes (Disabling)
  Sender: FDA-Public Use
  Company Number: None

PATIENT
  Age: 54 Year
  Sex: Female
  Weight: 72.5755 kg

DRUGS (1)
  1. CEFDINIR [Suspect]
     Indication: SINUSITIS
     Dosage: 300MG 12 HOURS PO
     Route: 048
     Dates: start: 20090105, end: 20090114

REACTIONS (7)
  - ABDOMINAL PAIN [None]
  - BACTERIAL INFECTION [None]
  - DIARRHOEA [None]
  - ILL-DEFINED DISORDER [None]
  - INTESTINAL FUNCTIONAL DISORDER [None]
  - JOB DISSATISFACTION [None]
  - MALAISE [None]
